FAERS Safety Report 4381477-7 (Version None)
Quarter: 2004Q2

REPORT INFORMATION
  Report Type: 
  Country: None (occurrence: None)
  Receive Date: 20040615
  Receipt Date: 20040604
  Transmission Date: 20050107
  Serious: Yes (Death, Hospitalization)
  Sender: FDA-Public Use
  Company Number: US-SHR-04-021817

PATIENT
  Age: 59 Year
  Sex: Female

DRUGS (9)
  1. BETASERON [Suspect]
     Indication: MULTIPLE SCLEROSIS
     Dosage: 8 MIU, EVERY 2D, SUBCUTANEOUS
     Route: 058
     Dates: start: 20030828, end: 20031112
  2. NEURONTIN [Concomitant]
  3. BACLOFEN [Concomitant]
  4. LEVOTHROID [Concomitant]
  5. AMANTADINE HCL [Concomitant]
  6. ZANAFLEX [Concomitant]
  7. CLONIDINE [Concomitant]
  8. PAXIL [Concomitant]
  9. LOTENSIN [Concomitant]

REACTIONS (9)
  - BACTERIA URINE [None]
  - CEREBRAL FUNGAL INFECTION [None]
  - LISTERIOSIS [None]
  - MENINGITIS [None]
  - MULTIPLE SCLEROSIS [None]
  - PNEUMONIA ASPIRATION [None]
  - PUPILLARY REFLEX IMPAIRED [None]
  - RESPIRATORY FAILURE [None]
  - STREPTOCOCCAL INFECTION [None]
